FAERS Safety Report 19124787 (Version 2)
Quarter: 2021Q2

REPORT INFORMATION
  Report Type: Spontaneous
  Country: US (occurrence: US)
  Receive Date: 20210412
  Receipt Date: 20210426
  Transmission Date: 20210717
  Serious: Yes (Other)
  Sender: FDA-Public Use
  Company Number: US-ORGANON-2101USA004635

PATIENT
  Sex: Female

DRUGS (10)
  1. TUKYSA [Interacting]
     Active Substance: TUCATINIB
     Dosage: UNK
  2. XELODA [Suspect]
     Active Substance: CAPECITABINE
     Dosage: 2 DOSAGE FORM, BID
  3. REMERON [Suspect]
     Active Substance: MIRTAZAPINE
     Dosage: UNK
  4. TUKYSA [Interacting]
     Active Substance: TUCATINIB
     Dosage: UNK
  5. TUKYSA [Interacting]
     Active Substance: TUCATINIB
     Dosage: UNK
  6. PROTONIX [Concomitant]
     Active Substance: PANTOPRAZOLE SODIUM
     Dosage: UNK
  7. HERCEPTIN [Concomitant]
     Active Substance: TRASTUZUMAB
     Dosage: UNK
  8. TUKYSA [Interacting]
     Active Substance: TUCATINIB
     Indication: BREAST CANCER FEMALE
     Dosage: UNK
  9. XELODA [Suspect]
     Active Substance: CAPECITABINE
     Indication: BREAST CANCER FEMALE
     Dosage: 3 DOSAGE FORM, BID
  10. TUKYSA [Interacting]
     Active Substance: TUCATINIB
     Dosage: UNK

REACTIONS (19)
  - Transfusion [Unknown]
  - Diarrhoea [Unknown]
  - Drug interaction [Unknown]
  - Eye disorder [Unknown]
  - Muscle spasms [Unknown]
  - Emotional disorder [Unknown]
  - Constipation [Unknown]
  - Gastrointestinal sounds abnormal [Unknown]
  - Pulmonary mass [Unknown]
  - Hypotension [Unknown]
  - Insomnia [Unknown]
  - Laboratory test abnormal [Unknown]
  - Decreased appetite [Unknown]
  - Sleep disorder [Unknown]
  - Skin erosion [Unknown]
  - Ejection fraction [Unknown]
  - Macular degeneration [Unknown]
  - Adverse drug reaction [Unknown]
  - Skin exfoliation [Recovering/Resolving]

NARRATIVE: CASE EVENT DATE: 202008
